FAERS Safety Report 12948210 (Version 1)
Quarter: 2016Q4

REPORT INFORMATION
  Report Type: Spontaneous
  Country: US (occurrence: US)
  Receive Date: 20161117
  Receipt Date: 20161117
  Transmission Date: 20170207
  Serious: Yes (Hospitalization, Other)
  Sender: FDA-Public Use
  Company Number: US-ACCORD-045561

PATIENT
  Age: 41 Year
  Sex: Female

DRUGS (2)
  1. CAPECITABINE. [Suspect]
     Active Substance: CAPECITABINE
     Indication: BREAST CANCER METASTATIC
  2. LAPATINIB/LAPATINIB DITOSYLATE [Concomitant]
     Indication: BREAST CANCER METASTATIC

REACTIONS (1)
  - Arteriospasm coronary [Recovered/Resolved]
